FAERS Safety Report 13671323 (Version 1)
Quarter: 2017Q2

REPORT INFORMATION
  Report Type: Spontaneous
  Country: US (occurrence: US)
  Receive Date: 20170620
  Receipt Date: 20170620
  Transmission Date: 20170830
  Serious: No
  Sender: FDA-Public Use
  Company Number: US-ROCHE-738062

PATIENT
  Age: 75 Year
  Sex: Female

DRUGS (3)
  1. MEGACE [Concomitant]
     Active Substance: MEGESTROL ACETATE
     Indication: DECREASED APPETITE
     Route: 065
  2. XELODA [Suspect]
     Active Substance: CAPECITABINE
     Dosage: 2 TABS IN AM AND 1 TAB IN PM
     Route: 048
  3. XELODA [Suspect]
     Active Substance: CAPECITABINE
     Indication: BREAST CANCER METASTATIC
     Dosage: 3 DOSEFORMS DAILY
     Route: 048
     Dates: start: 20100925, end: 20101006

REACTIONS (5)
  - Visual impairment [Not Recovered/Not Resolved]
  - Diarrhoea [Unknown]
  - Decreased appetite [Not Recovered/Not Resolved]
  - Asthenia [Unknown]
  - Dizziness [Not Recovered/Not Resolved]

NARRATIVE: CASE EVENT DATE: 20100925
